FAERS Safety Report 7374406-5 (Version None)
Quarter: 2011Q1

REPORT INFORMATION
  Report Type: 
  Country: None (occurrence: None)
  Receive Date: 20110325
  Receipt Date: 20110322
  Transmission Date: 20110831
  Serious: Yes (Other)
  Sender: FDA-Public Use
  Company Number: US-PFIZER INC-2010048000

PATIENT
  Sex: Female
  Weight: 92.971 kg

DRUGS (11)
  1. CHANTIX [Suspect]
     Dosage: UNK
     Route: 048
     Dates: start: 20110301
  2. FOLIC ACID [Concomitant]
     Dosage: UNK
  3. ADVAIR DISKUS 100/50 [Concomitant]
     Indication: BRONCHITIS CHRONIC
     Dosage: 250/50
  4. AMITIZA [Concomitant]
     Indication: IRRITABLE BOWEL SYNDROME
     Dosage: 8 UG, 2X/DAY
  5. CYCLOBENZAPRINE [Concomitant]
     Indication: ANXIETY
     Dosage: 10 MG, 1X/DAY
  6. KLONOPIN [Concomitant]
     Indication: ANXIETY
     Dosage: 1 MG, 3X/DAY
  7. ABILIFY [Concomitant]
     Indication: DEPRESSION
     Dosage: 15 MG, 1X/DAY
  8. VITAMIN B COMPLEX CAP [Concomitant]
     Dosage: UNK
  9. AMITRIPTYLINE [Concomitant]
     Indication: SLEEP DISORDER
     Dosage: 100 MG, 1X/DAY
  10. CHANTIX [Suspect]
     Indication: SMOKING CESSATION THERAPY
     Dosage: UNK
     Dates: start: 20090101
  11. CITALOPRAM [Concomitant]
     Indication: DEPRESSION
     Dosage: 40 MG, 1X/DAY

REACTIONS (1)
  - BIPOLAR DISORDER [None]
